FAERS Safety Report 19680079 (Version 8)
Quarter: 2022Q2

REPORT INFORMATION
  Report Type: Report from Study
  Country: US (occurrence: US)
  Receive Date: 20210809
  Receipt Date: 20220406
  Transmission Date: 20220721
  Serious: Yes (Hospitalization, Other)
  Sender: FDA-Public Use
  Company Number: US-ABBVIE-21K-163-4024189-00

PATIENT
  Age: 70 Year
  Sex: Female
  Weight: 49.940 kg

DRUGS (27)
  1. DUOPA [Suspect]
     Active Substance: CARBIDOPA\LEVODOPA
     Indication: Parkinson^s disease
     Route: 050
     Dates: start: 20190304, end: 20210802
  2. DUOPA [Suspect]
     Active Substance: CARBIDOPA\LEVODOPA
     Route: 050
     Dates: start: 20210805, end: 20210808
  3. DUOPA [Suspect]
     Active Substance: CARBIDOPA\LEVODOPA
     Route: 050
  4. EXELON PATCH [Concomitant]
     Active Substance: RIVASTIGMINE
     Indication: Cognitive disorder
  5. EXELON PATCH [Concomitant]
     Active Substance: RIVASTIGMINE
     Indication: Memory impairment
  6. PFIZER-BIONTECH COVID-19 VACCINE [Concomitant]
     Active Substance: TOZINAMERAN
     Indication: COVID-19 immunisation
     Dosage: FIRST DOSE
     Route: 030
     Dates: start: 202103, end: 202103
  7. PFIZER-BIONTECH COVID-19 VACCINE [Concomitant]
     Active Substance: TOZINAMERAN
     Dosage: SECOND DOSE
     Route: 030
     Dates: start: 202103, end: 202103
  8. PFIZER-BIONTECH COVID-19 VACCINE [Concomitant]
     Active Substance: TOZINAMERAN
     Dosage: BOOSTER DOSE
     Route: 030
  9. RYTARY [Concomitant]
     Active Substance: CARBIDOPA\LEVODOPA
     Indication: Parkinson^s disease
  10. PANTOPRAZOLE [Concomitant]
     Active Substance: PANTOPRAZOLE
     Indication: Product used for unknown indication
     Route: 048
  11. URSODIOL [Concomitant]
     Active Substance: URSODIOL
     Indication: Primary biliary cholangitis
     Route: 048
  12. CELEXA [Concomitant]
     Active Substance: CITALOPRAM HYDROBROMIDE
     Indication: Product used for unknown indication
     Route: 048
  13. CLINDAMYCIN [Concomitant]
     Active Substance: CLINDAMYCIN
     Indication: Product used for unknown indication
     Route: 048
  14. MOBIC [Concomitant]
     Active Substance: MELOXICAM
     Indication: Product used for unknown indication
     Route: 048
  15. SINEMET [Concomitant]
     Active Substance: CARBIDOPA\LEVODOPA
     Indication: Product used for unknown indication
     Dosage: 25-100MG
     Route: 048
  16. SENNA [Concomitant]
     Active Substance: SENNA LEAF\SENNOSIDES\SENNOSIDES A AND B
     Indication: Laxative supportive care
     Route: 048
  17. LEVOTHYROXINE NUPLAZID [Concomitant]
     Indication: Product used for unknown indication
     Dosage: 75MCG?10MG
     Route: 048
  18. CARBIDOPA, LEVODOPA AND ENTACAPONE [Concomitant]
     Active Substance: CARBIDOPA\ENTACAPONE\LEVODOPA
     Indication: Product used for unknown indication
     Dosage: 25-100-200MG
     Route: 048
  19. PRAMIPEXOLE [Concomitant]
     Active Substance: PRAMIPEXOLE
     Indication: Product used for unknown indication
     Route: 048
  20. ENALAPRIL [Concomitant]
     Active Substance: ENALAPRIL
     Indication: Product used for unknown indication
  21. MIRALAX [Concomitant]
     Active Substance: POLYETHYLENE GLYCOL 3350
     Indication: Laxative supportive care
     Route: 048
  22. PIMAVANSERIN [Concomitant]
     Active Substance: PIMAVANSERIN
     Indication: Parkinson^s disease psychosis
  23. CLOZAPINE [Concomitant]
     Active Substance: CLOZAPINE
     Indication: Psychotic disorder
  24. CLOZAPINE [Concomitant]
     Active Substance: CLOZAPINE
     Indication: Anxiety
  25. MELATONIN [Concomitant]
     Active Substance: MELATONIN
     Indication: Sleep disorder therapy
  26. TYLENOL [Concomitant]
     Active Substance: ACETAMINOPHEN
     Indication: Pain
  27. SYNTHROID [Concomitant]
     Active Substance: LEVOTHYROXINE SODIUM
     Indication: Hypothyroidism

REACTIONS (16)
  - Mental status changes [Recovering/Resolving]
  - Mental status changes [Unknown]
  - Lethargy [Unknown]
  - Living in residential institution [Recovered/Resolved]
  - Joint range of motion decreased [Unknown]
  - Fatigue [Unknown]
  - Pneumonia bacterial [Unknown]
  - Feeding disorder [Unknown]
  - Rehabilitation therapy [Unknown]
  - Device issue [Recovered/Resolved]
  - Cognitive disorder [Unknown]
  - Dementia [Unknown]
  - Asthenia [Unknown]
  - Constipation [Recovering/Resolving]
  - Disorientation [Recovering/Resolving]
  - Unevaluable event [Recovering/Resolving]

NARRATIVE: CASE EVENT DATE: 20200701
